FAERS Safety Report 8618510 (Version 3)
Quarter: 2012Q4

REPORT INFORMATION
  Report Type: 
  Country: DE (occurrence: JP)
  Receive Date: 20120618
  Receipt Date: 20120912
  Transmission Date: 20130627
  Serious: Yes (Hospitalization)
  Sender: FDA-Public Use
  Company Number: JP-BRISTOL-MYERS SQUIBB COMPANY-16680423

PATIENT
  Age: 76 Year
  Sex: Female

DRUGS (10)
  1. METGLUCO [Suspect]
     Indication: DIABETES MELLITUS
     Dosage: Therapy date: before 12Oct2012-25May12
     Route: 048
     Dates: end: 20120525
  2. SEIBULE [Concomitant]
     Indication: DIABETES MELLITUS
     Route: 048
     Dates: start: 20110615
  3. GLIMEPIRIDE [Concomitant]
     Indication: DIABETES MELLITUS
     Route: 048
     Dates: start: 20110419
  4. NU-LOTAN [Concomitant]
     Indication: HYPERTENSION
     Route: 048
  5. CALBLOCK [Concomitant]
     Indication: HYPERTENSION
     Route: 048
  6. CRESTOR [Concomitant]
     Indication: DYSLIPIDAEMIA
     Route: 048
  7. PLAVIX [Concomitant]
     Indication: CEREBRAL INFARCTION
     Route: 048
  8. MAGLAX [Concomitant]
     Indication: CONSTIPATION
     Route: 048
  9. REBAMIPIDE [Concomitant]
     Indication: GASTRITIS
     Route: 048
  10. JANUVIA [Concomitant]
     Indication: DIABETES MELLITUS
     Route: 048
     Dates: start: 20110615

REACTIONS (5)
  - Metabolic acidosis [Recovered/Resolved]
  - Eating disorder [None]
  - Back pain [None]
  - Faecal incontinence [None]
  - Renal failure [None]
